FAERS Safety Report 4536354-5 (Version None)
Quarter: 2004Q4

REPORT INFORMATION
  Report Type: 
  Country: None (occurrence: None)
  Receive Date: 20041223
  Receipt Date: 20040817
  Transmission Date: 20050328
  Serious: No
  Sender: FDA-Public Use
  Company Number: US-GLAXOSMITHKLINE-A0522453A

PATIENT
  Age: 57 Year
  Sex: Male

DRUGS (3)
  1. FLONASE [Suspect]
     Dosage: 4SPR PER DAY
     Route: 045
  2. ADVAIR DISKUS 100/50 [Suspect]
     Dosage: 1PUFF TWICE PER DAY
     Route: 055
  3. ALBUTEROL [Concomitant]

REACTIONS (5)
  - ASTHENIA [None]
  - EPISTAXIS [None]
  - HEADACHE [None]
  - NEUROPATHY PERIPHERAL [None]
  - OEDEMA PERIPHERAL [None]
